FAERS Safety Report 6117494-6 (Version None)
Quarter: 2009Q1

REPORT INFORMATION
  Report Type: 
  Country: None (occurrence: None)
  Receive Date: 20090314
  Receipt Date: 20090119
  Transmission Date: 20090719
  Serious: No
  Sender: FDA-Public Use
  Company Number: US-ABBOTT-09P-163-0498716-00

PATIENT
  Sex: Female
  Weight: 140.29 kg

DRUGS (4)
  1. HUMIRA [Suspect]
     Indication: RHEUMATOID ARTHRITIS
     Dates: start: 20071219
  2. HUMIRA [Suspect]
  3. CELEXA [Concomitant]
     Indication: DEPRESSION
     Dates: start: 20070101
  4. SYNTHROID [Concomitant]
     Indication: HYPERTHYROIDISM
     Dates: start: 20000101

REACTIONS (1)
  - DRUG INEFFECTIVE [None]
